FAERS Safety Report 5567065-5 (Version None)
Quarter: 2007Q4

REPORT INFORMATION
  Report Type: 
  Country: None (occurrence: None)
  Receive Date: 20071219
  Receipt Date: 20060915
  Transmission Date: 20080405
  Serious: Yes (Death, Hospitalization)
  Sender: FDA-Public Use
  Company Number: BE-ROCHE-447209

PATIENT
  Age: 56 Year
  Sex: Female

DRUGS (11)
  1. CELLCEPT [Suspect]
     Route: 048
     Dates: start: 20060101, end: 20060309
  2. MEDROL [Concomitant]
     Dosage: INDICATION REPORTED AS IDEM.
     Route: 048
     Dates: start: 20051031
  3. ZANTAC [Concomitant]
     Route: 048
  4. GUANIDINE [Concomitant]
     Route: 048
     Dates: start: 19880101
  5. MAREVAN [Concomitant]
  6. CACO3 [Concomitant]
  7. ISOPTIN [Concomitant]
  8. D-CURE [Concomitant]
  9. ELTHYRONE [Concomitant]
  10. BEFACT FORTE [Concomitant]
  11. FOLIC ACID [Concomitant]

REACTIONS (3)
  - COLITIS [None]
  - PANNICULITIS [None]
  - RESPIRATORY FAILURE [None]
